FAERS Safety Report 18519776 (Version 1)
Quarter: 2020Q4

REPORT INFORMATION
  Report Type: Other
  Country: US (occurrence: US)
  Receive Date: 20201118
  Receipt Date: 20201118
  Transmission Date: 20210114
  Serious: No
  Sender: FDA-Public Use
  Company Number: US-NORTHSTAR MEDICAL RADIOISOTOPES, LLC -2096075

PATIENT

DRUGS (1)
  1. RADIOGENIX SYSTEM [Suspect]
     Active Substance: TECHNETIUM TC-99M SODIUM PERTECHNETATE

REACTIONS (1)
  - Drug ineffective [Recovered/Resolved]

NARRATIVE: CASE EVENT DATE: 20200717
